FAERS Safety Report 7963894-9 (Version None)
Quarter: 2011Q4

REPORT INFORMATION
  Report Type: 
  Country: None (occurrence: None)
  Receive Date: 20111205
  Receipt Date: 20111121
  Transmission Date: 20120403
  Serious: Yes (Congenital Anomaly, Other)
  Sender: FDA-Public Use
  Company Number: E2B_0000131

PATIENT
  Sex: Male
  Weight: 4.12 kg

DRUGS (5)
  1. FOLIC ACID (FOLIO FORTE) (UNKNOWN) [Concomitant]
  2. LORAZEPAM [Concomitant]
  3. DIMENHYDRINATE (VOMEX A) (UNKNOWN) [Concomitant]
  4. SERTRALINE HYDROCHLORIDE [Suspect]
     Indication: DEPRESSION
     Dosage: 75 MG (75 MG, PER DAY), TRANSPLACENTAL 100 MG (100 MG, PER DAY), TRANSPLACENTAL
     Route: 064
     Dates: start: 20101220, end: 20110118
  5. SERTRALINE HYDROCHLORIDE [Suspect]
     Indication: DEPRESSION
     Dosage: 75 MG (75 MG, PER DAY), TRANSPLACENTAL 100 MG (100 MG, PER DAY), TRANSPLACENTAL
     Route: 064
     Dates: end: 20110802

REACTIONS (11)
  - CAESAREAN SECTION [None]
  - ASPARTATE AMINOTRANSFERASE INCREASED [None]
  - DRUG WITHDRAWAL SYNDROME NEONATAL [None]
  - PETECHIAE [None]
  - BLOOD LACTATE DEHYDROGENASE INCREASED [None]
  - LARGE FOR DATES BABY [None]
  - MATERNAL DRUGS AFFECTING FOETUS [None]
  - HAEMANGIOMA CONGENITAL [None]
  - NEONATAL RESPIRATORY DISTRESS SYNDROME [None]
  - ATRIAL SEPTAL DEFECT [None]
  - NEONATAL INFECTION [None]
